FAERS Safety Report 7524910-1 (Version None)
Quarter: 2011Q2

REPORT INFORMATION
  Report Type: 
  Country: None (occurrence: None)
  Receive Date: 20110606
  Receipt Date: 20110509
  Transmission Date: 20111010
  Serious: Yes (Hospitalization, Other)
  Sender: FDA-Public Use
  Company Number: US-BAYER-201041475NA

PATIENT
  Age: 51 Year
  Sex: Female

DRUGS (3)
  1. YAZ [Suspect]
     Indication: ACNE
     Route: 048
  2. YASMIN [Suspect]
     Indication: ACNE
     Route: 048
  3. DROSPIRENONE AND ETHINYL ESTRADIOL [Suspect]
     Indication: ACNE
     Route: 048

REACTIONS (2)
  - THROMBOSIS [None]
  - INJURY [None]
